FAERS Safety Report 7034817-4 (Version None)
Quarter: 2010Q4

REPORT INFORMATION
  Report Type: 
  Country: None (occurrence: None)
  Receive Date: 20101008
  Receipt Date: 20101006
  Transmission Date: 20110411
  Serious: Yes (Hospitalization)
  Sender: FDA-Public Use
  Company Number: US-GILEAD-2010-0032193

PATIENT
  Sex: Female
  Weight: 59.928 kg

DRUGS (21)
  1. LETAIRIS [Suspect]
     Indication: PULMONARY ARTERIAL HYPERTENSION
     Route: 048
     Dates: start: 20100910
  2. PLAVIX [Concomitant]
  3. FUROSEMIDE [Concomitant]
  4. AMLODIPINE BESYLATE [Concomitant]
  5. PULMICORT [Concomitant]
  6. ALBUTEROL [Concomitant]
  7. SINGULAIR [Concomitant]
  8. PREDNISONE [Concomitant]
  9. ZYPREXA [Concomitant]
  10. LORAZEPAM [Concomitant]
  11. SERTRALINE [Concomitant]
  12. COLACE [Concomitant]
  13. DOXAZOSIN MESYLATE [Concomitant]
  14. OXYCODONE HCL AND ACETAMINOPHEN [Concomitant]
  15. MULTI-VITAMINS [Concomitant]
  16. FIBER [Concomitant]
  17. OMEPRAZOLE [Concomitant]
  18. ARICEPT [Concomitant]
  19. PROCRIT [Concomitant]
  20. MUCINEX [Concomitant]
  21. CACLIUM PLUS VITAMIN C [Concomitant]

REACTIONS (1)
  - CHRONIC OBSTRUCTIVE PULMONARY DISEASE [None]
